FAERS Safety Report 5643724-0 (Version None)
Quarter: 2008Q1

REPORT INFORMATION
  Report Type: 
  Country: None (occurrence: None)
  Receive Date: 20080228
  Receipt Date: 20080219
  Transmission Date: 20080703
  Serious: Yes (Other)
  Sender: FDA-Public Use
  Company Number: DE-PFIZER INC-2008015824

PATIENT
  Sex: Female

DRUGS (6)
  1. NEURONTIN [Suspect]
     Indication: NEURALGIA
     Dosage: DAILY DOSE:2.4GRAM-FREQ:DAILY
     Route: 048
  2. LYRICA [Suspect]
     Indication: NEURALGIA
     Route: 048
  3. XIPAMIDE [Concomitant]
     Indication: OEDEMA
  4. OXYCODONE HCL [Concomitant]
     Indication: PAIN
  5. NALOXONE [Concomitant]
     Indication: PAIN
  6. MOVICOL [Concomitant]
     Indication: CONSTIPATION

REACTIONS (1)
  - OEDEMA [None]
